FAERS Safety Report 6298676-X (Version None)
Quarter: 2009Q3

REPORT INFORMATION
  Report Type: 
  Country: None (occurrence: None)
  Receive Date: 20090804
  Receipt Date: 20090722
  Transmission Date: 20100115
  Serious: Yes (Other)
  Sender: FDA-Public Use
  Company Number: DSA_34057_2009

PATIENT
  Sex: Male

DRUGS (3)
  1. ATIVAN [Suspect]
     Indication: HYPERSENSITIVITY
     Dosage: HIGH DOSE
  2. DEPAKOTE [Suspect]
     Indication: HYPERSENSITIVITY
     Dosage: HIGH DOSE
  3. SEROQUEL [Suspect]
     Indication: HYPERSENSITIVITY
     Dosage: HIGH DOSE

REACTIONS (2)
  - COMA [None]
  - DEHYDRATION [None]
